FAERS Safety Report 19887065 (Version 1)
Quarter: 2021Q3

REPORT INFORMATION
  Report Type: Spontaneous
  Country: US (occurrence: US)
  Receive Date: 20210927
  Receipt Date: 20210927
  Transmission Date: 20211014
  Serious: Yes (Other)
  Sender: FDA-Public Use
  Company Number: US-SA-2021SA315770

PATIENT
  Age: 73 Year
  Sex: Male

DRUGS (1)
  1. ZANTAC [Suspect]
     Active Substance: RANITIDINE HYDROCHLORIDE
     Indication: DYSPEPSIA
     Dosage: OTHER, FREQUENCY OCCASIONAL
     Dates: start: 201001, end: 201901

REACTIONS (1)
  - Prostate cancer stage II [Unknown]

NARRATIVE: CASE EVENT DATE: 20171001
